FAERS Safety Report 12187897 (Version 2)
Quarter: 2016Q2

REPORT INFORMATION
  Report Type: Spontaneous
  Country: JP (occurrence: JP)
  Receive Date: 20160317
  Receipt Date: 20160408
  Transmission Date: 20160815
  Serious: Yes (Hospitalization, Other)
  Sender: FDA-Public Use
  Company Number: JP-BRISTOL-MYERS SQUIBB COMPANY-BMS-2016-011875

PATIENT
  Age: 24 Year
  Sex: Female

DRUGS (1)
  1. ABILIFY [Suspect]
     Active Substance: ARIPIPRAZOLE
     Indication: PRODUCT USED FOR UNKNOWN INDICATION
     Dosage: 159 MG, UNK
     Route: 048

REACTIONS (4)
  - Hypothermia [Unknown]
  - Cardio-respiratory arrest [Recovering/Resolving]
  - Overdose [Unknown]
  - Somnolence [Unknown]
